FAERS Safety Report 25812019 (Version 1)
Quarter: 2025Q3

REPORT INFORMATION
  Report Type: Spontaneous
  Country: US (occurrence: None)
  Receive Date: 20250916
  Receipt Date: 20250916
  Transmission Date: 20251021
  Serious: Yes (Death)
  Sender: FDA-CTU
  Company Number: None

PATIENT
  Age: 57 Year
  Sex: Male

DRUGS (15)
  1. MAVYRET [Suspect]
     Active Substance: GLECAPREVIR\PIBRENTASVIR
     Indication: Hepatitis C
     Dosage: FREQUENCY : DAILY;?STRENGTH: 100-40 MG ?DOSE: 300-120 MG
     Route: 048
     Dates: start: 20250807, end: 20250829
  2. DULERA [Concomitant]
     Active Substance: FORMOTEROL FUMARATE DIHYDRATE\MOMETASONE FUROATE
  3. DULOXETINE [Concomitant]
     Active Substance: DULOXETINE
  4. GABAPENTIN [Concomitant]
     Active Substance: GABAPENTIN
  5. HYDROXYZINE HYDROCHLORIDE [Concomitant]
     Active Substance: HYDROXYZINE HYDROCHLORIDE
  6. LEVOTHYROXINE [Concomitant]
     Active Substance: LEVOTHYROXINE
  7. MIRTAZAPINE [Concomitant]
     Active Substance: MIRTAZAPINE
  8. NICOTINE [Concomitant]
     Active Substance: NICOTINE
  9. QUETIAPINE [Concomitant]
     Active Substance: QUETIAPINE
  10. SILDENAFIL [Concomitant]
     Active Substance: SILDENAFIL
  11. SUMATRIPTAN [Concomitant]
     Active Substance: SUMATRIPTAN
  12. VITAMIN D3 [Concomitant]
     Active Substance: CHOLECALCIFEROL
  13. ACYCLOVIR [Concomitant]
     Active Substance: ACYCLOVIR
  14. ALBUTEROL HFA INH [Concomitant]
  15. ATORVASTATIN [Concomitant]
     Active Substance: ATORVASTATIN

REACTIONS (1)
  - Death [None]

NARRATIVE: CASE EVENT DATE: 20250829
